FAERS Safety Report 25388112 (Version 1)
Quarter: 2025Q2

REPORT INFORMATION
  Report Type: Spontaneous
  Country: CH (occurrence: CH)
  Receive Date: 20250603
  Receipt Date: 20250603
  Transmission Date: 20250716
  Serious: Yes (Other)
  Sender: Unknown Manufacturer
  Company Number: CH-CDSU_IT-CH-MEN-114176

PATIENT

DRUGS (4)
  1. ORITAVANCIN [Suspect]
     Active Substance: ORITAVANCIN
     Indication: Antibiotic therapy
     Route: 042
     Dates: start: 20241101, end: 20241101
  2. ORITAVANCIN [Suspect]
     Active Substance: ORITAVANCIN
     Indication: Staphylococcal infection
  3. BULEVIRTIDE [Concomitant]
     Active Substance: BULEVIRTIDE
  4. TENFOVIR [Concomitant]

REACTIONS (2)
  - Infusion site thrombosis [Recovered/Resolved]
  - Product use in unapproved indication [Recovered/Resolved]

NARRATIVE: CASE EVENT DATE: 20241101
